FAERS Safety Report 24355719 (Version 1)
Quarter: 2024Q3

REPORT INFORMATION
  Report Type: Report from Study
  Country: US (occurrence: US)
  Receive Date: 20240924
  Receipt Date: 20240924
  Transmission Date: 20241016
  Serious: Yes (Hospitalization)
  Sender: ACCORD
  Company Number: US-Accord-447357

PATIENT
  Age: 59 Year
  Sex: Female
  Weight: 56.7 kg

DRUGS (1)
  1. CLOZAPINE [Suspect]
     Active Substance: CLOZAPINE
     Indication: Schizophrenia
     Dosage: 25MG TABLETS, ORAL, EVERY MORNING, AND 25MG, 7 TABLETS, ORAL, EVERY?EVENING
     Route: 048

REACTIONS (7)
  - Sepsis [Unknown]
  - Osteomyelitis [Unknown]
  - Decubitus ulcer [Unknown]
  - Dysphagia [Unknown]
  - Neutrophil count abnormal [Unknown]
  - Full blood count abnormal [Unknown]
  - Blood sodium increased [Unknown]

NARRATIVE: CASE EVENT DATE: 20240904
